FAERS Safety Report 19453586 (Version 1)
Quarter: 2021Q2

REPORT INFORMATION
  Report Type: Spontaneous
  Country: US (occurrence: US)
  Receive Date: 20210623
  Receipt Date: 20210623
  Transmission Date: 20210717
  Serious: No
  Sender: FDA-Public Use
  Company Number: US-EMD SERONO-9243621

PATIENT
  Age: 47 Year
  Sex: Male

DRUGS (1)
  1. MAVENCLAD [Suspect]
     Active Substance: CLADRIBINE
     Indication: MULTIPLE SCLEROSIS
     Dosage: YEAR ONE MONTH ONE THERAPY
     Route: 048
     Dates: start: 20210603, end: 20210607

REACTIONS (2)
  - Rash pruritic [Unknown]
  - Rash macular [Unknown]

NARRATIVE: CASE EVENT DATE: 20210605
